FAERS Safety Report 5758861-X (Version None)
Quarter: 2008Q2

REPORT INFORMATION
  Report Type: 
  Country: None (occurrence: None)
  Receive Date: 20080603
  Receipt Date: 20080603
  Transmission Date: 20081010
  Serious: Yes (Hospitalization)
  Sender: FDA-Public Use
  Company Number: None

PATIENT
  Age: 64 Year
  Sex: Male

DRUGS (2)
  1. MOXIFLOXACIN HCL [Suspect]
     Indication: CELLULITIS
     Dosage: 400 MG EVERY DAY PO
     Route: 048
     Dates: start: 20070722, end: 20070801
  2. CEPHALEXIN [Suspect]
     Indication: CELLULITIS
     Dosage: 500 MG QID PO
     Route: 048
     Dates: start: 20070719, end: 20070801

REACTIONS (3)
  - DEHYDRATION [None]
  - DIARRHOEA [None]
  - UNEVALUABLE EVENT [None]
